FAERS Safety Report 7220769-0 (Version None)
Quarter: 2011Q1

REPORT INFORMATION
  Report Type: 
  Country: None (occurrence: None)
  Receive Date: 20110111
  Receipt Date: 20110110
  Transmission Date: 20110831
  Serious: Yes (Other)
  Sender: FDA-Public Use
  Company Number: US-BRISTOL-MYERS SQUIBB COMPANY-15438286

PATIENT
  Age: 59 Year
  Sex: Female

DRUGS (3)
  1. AVALIDE [Suspect]
     Dosage: 1DF:300/12.5 DAILY FOR 4-5YEARS, ALSO TAKEN 150/12.5 MG TABLETS BID
  2. LEVAQUIN [Concomitant]
  3. DIOVAN [Suspect]
     Dates: start: 20100401

REACTIONS (2)
  - MEDICATION ERROR [None]
  - PNEUMONIA [None]
